FAERS Safety Report 9451016 (Version 1)
Quarter: 2013Q3

REPORT INFORMATION
  Report Type: Spontaneous
  Country: IT (occurrence: None)
  Receive Date: 20130807
  Receipt Date: 20130807
  Transmission Date: 20140515
  Serious: Yes (Hospitalization)
  Sender: FDA-Public Use
  Company Number: AUR-APL-2013-06482

PATIENT
  Age: 81 Year
  Sex: Male

DRUGS (3)
  1. OLANZAPINE (OLANZAPINE) [Suspect]
     Indication: BIPOLAR I DISORDER
     Dosage: 1 D
     Route: 048
  2. TEGRETOL (CARBAMAZEPINE) UNKNOWN [Suspect]
     Dates: end: 2012
  3. METFORMIN [Concomitant]

REACTIONS (7)
  - Asthenia [None]
  - Bradykinesia [None]
  - Sopor [None]
  - Overdose [None]
  - Speech disorder [None]
  - Drug level increased [None]
  - Drug interaction [None]
